FAERS Safety Report 20214200 (Version 1)
Quarter: 2021Q4

REPORT INFORMATION
  Report Type: Spontaneous
  Country: IN (occurrence: IN)
  Receive Date: 20211221
  Receipt Date: 20211221
  Transmission Date: 20220303
  Serious: Yes (Other)
  Sender: FDA-Public Use
  Company Number: IN-NOVARTISPH-NVSC2021IN291247

PATIENT
  Age: 55 Year
  Sex: Male

DRUGS (3)
  1. PAZOPANIB [Suspect]
     Active Substance: PAZOPANIB
     Indication: Adenocarcinoma gastric
     Dosage: 400 MG, QD (5 CYCLIC)
     Route: 048
     Dates: start: 201810, end: 201902
  2. GEMCITABINE [Suspect]
     Active Substance: GEMCITABINE
     Indication: Adenocarcinoma gastric
     Dosage: 800 MG, D1 AND D8 OF 21 DAY CYCLE (5 CYCLIC)
     Route: 042
     Dates: start: 201810, end: 201902
  3. PEMETREXED [Suspect]
     Active Substance: PEMETREXED
     Indication: Adenocarcinoma gastric
     Dosage: 400 MG, D1 AND D8 OF 21 DAY CYCLE (5 CYCLIC)
     Route: 042
     Dates: start: 201810, end: 201902

REACTIONS (6)
  - Fatigue [Recovered/Resolved]
  - Thrombocytopenia [Recovered/Resolved]
  - Sepsis [Recovered/Resolved]
  - Pneumothorax [Recovered/Resolved]
  - Therapy partial responder [Unknown]
  - Product use in unapproved indication [Unknown]
